FAERS Safety Report 8996011 (Version 1)
Quarter: 2013Q1

REPORT INFORMATION
  Report Type: Spontaneous
  Country: US (occurrence: US)
  Receive Date: 20130103
  Receipt Date: 20130103
  Transmission Date: 20140127
  Serious: No
  Sender: FDA-Public Use
  Company Number: US-ABBOTT-12P-163-0940172-00

PATIENT
  Sex: Female
  Weight: 143.46 kg

DRUGS (6)
  1. SYNTHROID [Suspect]
     Indication: THYROIDECTOMY
     Dosage: ONE IN THE MORNING AND ONE IN EVENING
     Dates: start: 1980, end: 201204
  2. SYNTHROID [Suspect]
     Dosage: 75MICROGRAM DAILY
     Dates: start: 201204
  3. CYTOMEL [Concomitant]
     Indication: TRI-IODOTHYRONINE DECREASED
     Route: 048
     Dates: start: 2006
  4. FISH OIL [Concomitant]
     Indication: SUPPLEMENTATION THERAPY
  5. CALCIUM CITRATE [Concomitant]
     Indication: MINERAL SUPPLEMENTATION
  6. VITAMIN D [Concomitant]
     Indication: VITAMIN SUPPLEMENTATION

REACTIONS (4)
  - Diarrhoea [Not Recovered/Not Resolved]
  - Hair colour changes [Not Recovered/Not Resolved]
  - Tongue discolouration [Not Recovered/Not Resolved]
  - Cryptosporidiosis infection [Not Recovered/Not Resolved]
